FAERS Safety Report 4799015-3 (Version None)
Quarter: 2005Q4

REPORT INFORMATION
  Report Type: 
  Country: None (occurrence: None)
  Receive Date: 20051013
  Receipt Date: 20050930
  Transmission Date: 20060501
  Serious: Yes (Other)
  Sender: FDA-Public Use
  Company Number: 200513951BCC

PATIENT
  Age: 81 Year
  Sex: Male
  Weight: 65.7716 kg

DRUGS (18)
  1. ALEVE (CAPLET) [Suspect]
     Indication: PAIN
     Dosage: 440 MG, TOTAL DAILY, ORAL
     Route: 048
     Dates: start: 20050929
  2. HYDROCODONE [Concomitant]
  3. VITAMIN B COMPLEX CAP [Concomitant]
  4. VITAMIN E [Concomitant]
  5. CALCIUM ACETATE [Concomitant]
  6. LASIX [Concomitant]
  7. GUAIFENESIN [Concomitant]
  8. CALCIUM CARBONATE [Concomitant]
  9. FUROSEMIDE [Concomitant]
  10. DIGOXIN [Concomitant]
  11. QUININE SULFATE [Concomitant]
  12. TERAZOSIN HCL [Concomitant]
  13. RANITDINE [Concomitant]
  14. FELODIPINE [Concomitant]
  15. IRBESARTAN [Concomitant]
  16. ALBUTEROL [Concomitant]
  17. AEROBID [Concomitant]
  18. SEREVENT [Concomitant]

REACTIONS (3)
  - BLOOD PRESSURE DIASTOLIC DECREASED [None]
  - BLOOD PRESSURE INCREASED [None]
  - CONDITION AGGRAVATED [None]
